FAERS Safety Report 19260125 (Version 2)
Quarter: 2023Q1

REPORT INFORMATION
  Report Type: Report from Study
  Country: US (occurrence: US)
  Receive Date: 20210514
  Receipt Date: 20230120
  Transmission Date: 20230418
  Serious: Yes (Other)
  Sender: FDA-Public Use
  Company Number: US-JAZZ-2021-US-000209

PATIENT
  Sex: Male

DRUGS (11)
  1. XYREM [Suspect]
     Active Substance: SODIUM OXYBATE
     Indication: Narcolepsy
     Dosage: 4.5 GRAM, BID
     Route: 048
     Dates: start: 201201
  2. XYREM [Suspect]
     Active Substance: SODIUM OXYBATE
     Indication: Cataplexy
  3. FLUOCINOLONE ACET [Concomitant]
     Indication: Product used for unknown indication
     Dosage: UNK
     Dates: start: 20151026
  4. MONTELUKAST SODIUM [Concomitant]
     Active Substance: MONTELUKAST SODIUM
     Indication: Product used for unknown indication
     Dosage: UNK
     Dates: start: 20160226
  5. OMEPRAZOLE [Concomitant]
     Active Substance: OMEPRAZOLE
     Indication: Product used for unknown indication
     Dosage: UNK
     Dates: start: 20161010
  6. HYDROCHLOROTHIAZIDE\TELMISARTAN [Concomitant]
     Active Substance: HYDROCHLOROTHIAZIDE\TELMISARTAN
     Indication: Product used for unknown indication
     Dosage: UNK
     Dates: start: 20160912
  7. WELLBUTRIN XL [Concomitant]
     Active Substance: BUPROPION HYDROCHLORIDE
     Indication: Product used for unknown indication
     Dosage: UNK
     Dates: start: 20171009
  8. DICLOFENAC SODIUM BP [Concomitant]
     Indication: Product used for unknown indication
     Dosage: UNK
     Dates: start: 20190501
  9. CRANBERRY CONCENTRATE [VACCINIUM MACROCARPON] [Concomitant]
     Indication: Product used for unknown indication
     Dosage: UNK
     Dates: start: 20200701
  10. MELATONIN [Concomitant]
     Active Substance: MELATONIN
     Indication: Product used for unknown indication
     Dosage: UNK
     Dates: start: 20210603
  11. EXCEDRIN MIGRAINE [Concomitant]
     Active Substance: ACETAMINOPHEN\ASPIRIN\CAFFEINE
     Indication: Product used for unknown indication
     Dosage: UNK
     Dates: start: 20110803

REACTIONS (9)
  - Sleep apnoea syndrome [Unknown]
  - Cough [Not Recovered/Not Resolved]
  - Erythema [Unknown]
  - Skin exfoliation [Unknown]
  - Blood cholesterol increased [Unknown]
  - Night sweats [Not Recovered/Not Resolved]
  - Blood pressure increased [Recovering/Resolving]
  - Iron deficiency anaemia [Unknown]
  - Hypersensitivity [Unknown]
